FAERS Safety Report 25215178 (Version 2)
Quarter: 2025Q2

REPORT INFORMATION
  Report Type: Report from Study
  Country: MX (occurrence: MX)
  Receive Date: 20250418
  Receipt Date: 20250514
  Transmission Date: 20250717
  Serious: Yes (Death, Hospitalization, Other)
  Sender: DAIICHI
  Company Number: MX-AstraZeneca-CH-00738746A

PATIENT
  Sex: Female
  Weight: 90 kg

DRUGS (2)
  1. ENHERTU [Suspect]
     Active Substance: FAM-TRASTUZUMAB DERUXTECAN-NXKI
     Indication: HER2 low breast cancer
     Dosage: 400 MG, ONCE EVERY 3 WK
     Route: 042
     Dates: start: 20210404
  2. ENHERTU [Suspect]
     Active Substance: FAM-TRASTUZUMAB DERUXTECAN-NXKI
     Dosage: 466 MG, ONCE EVERY 3 WK
     Route: 042
     Dates: start: 20240404, end: 202504

REACTIONS (8)
  - Death [Fatal]
  - Abscess jaw [Not Recovered/Not Resolved]
  - Dizziness [Unknown]
  - Head injury [Unknown]
  - Fall [Unknown]
  - Metastasis [Unknown]
  - Fatigue [Unknown]
  - Abdominal discomfort [Unknown]
